FAERS Safety Report 9979819 (Version 1)
Quarter: 2014Q1

REPORT INFORMATION
  Report Type: Report from Study
  Country: US (occurrence: US)
  Receive Date: 20140306
  Receipt Date: 20140306
  Transmission Date: 20141002
  Serious: No
  Sender: FDA-Public Use
  Company Number: US-ABBVIE-13P-163-1172500-00

PATIENT
  Sex: Female
  Weight: 120.31 kg

DRUGS (19)
  1. HUMIRA [Suspect]
     Indication: POLYCHONDRITIS
     Dates: start: 2012, end: 2012
  2. PREDNISONE [Concomitant]
     Indication: POLYCHONDRITIS
  3. HUMALOG [Concomitant]
     Indication: DIABETES MELLITUS
  4. LANTUS [Concomitant]
     Indication: DIABETES MELLITUS
  5. FORTEO [Concomitant]
     Indication: OSTEOPOROSIS
  6. METHOTREXATE [Concomitant]
     Indication: POLYCHONDRITIS
  7. FOLIC ACID [Concomitant]
     Indication: VITAMIN SUPPLEMENTATION
  8. POTASSIUM [Concomitant]
     Indication: HYPOKALAEMIA
  9. METOLAZONE [Concomitant]
     Indication: FLUID RETENTION
  10. BUMEX [Concomitant]
     Indication: FLUID RETENTION
  11. SPIRONOLACTONE [Concomitant]
     Indication: FLUID RETENTION
  12. CYMBALTA [Concomitant]
     Indication: FIBROMYALGIA
  13. COUMADIN [Concomitant]
     Indication: ANTIPHOSPHOLIPID ANTIBODIES
  14. OPANA [Concomitant]
     Indication: PAIN
  15. OXYCODONE [Concomitant]
     Indication: PAIN
  16. DIAZEPAM [Concomitant]
     Indication: ANXIETY
  17. CYCLOBENZAPRINE [Concomitant]
     Indication: PAIN
  18. PRILOSEC [Concomitant]
     Indication: GASTROOESOPHAGEAL REFLUX DISEASE
  19. COLACE [Concomitant]
     Indication: CONSTIPATION

REACTIONS (1)
  - Drug ineffective [Not Recovered/Not Resolved]
